FAERS Safety Report 7339086-3 (Version None)
Quarter: 2011Q1

REPORT INFORMATION
  Report Type: 
  Country: None (occurrence: None)
  Receive Date: 20110228
  Receipt Date: 20110218
  Transmission Date: 20110831
  Serious: Yes (Other)
  Sender: FDA-Public Use
  Company Number: 2011PL000024

PATIENT
  Age: 56 Year
  Sex: Male

DRUGS (2)
  1. MERCAPTOPURINE [Suspect]
     Indication: CROHN'S DISEASE
     Dosage: 75 MG; QD
     Dates: start: 20020101, end: 20081201
  2. NADOLOL [Concomitant]

REACTIONS (6)
  - NODULAR REGENERATIVE HYPERPLASIA [None]
  - INTESTINAL RESECTION [None]
  - VARICES OESOPHAGEAL [None]
  - THROMBOCYTOPENIA [None]
  - SPLENOMEGALY [None]
  - PORTAL HYPERTENSION [None]
